FAERS Safety Report 7405954-7 (Version None)
Quarter: 2011Q2

REPORT INFORMATION
  Report Type: 
  Country: None (occurrence: None)
  Receive Date: 20110405
  Receipt Date: 20110405
  Transmission Date: 20111010
  Serious: No
  Sender: FDA-Public Use
  Company Number: None

PATIENT
  Sex: Female

DRUGS (1)
  1. DORZOLAMIDE HYDROCHLORIDE AND TIMOLOL MALEATE [Suspect]
     Indication: DEVELOPMENTAL GLAUCOMA
     Dosage: 15++ OU BID TOPICAL-EYE
     Route: 047
     Dates: start: 20110314, end: 20110315

REACTIONS (1)
  - EYE BURNS [None]
